FAERS Safety Report 11751326 (Version 1)
Quarter: 2015Q4

REPORT INFORMATION
  Report Type: Spontaneous
  Country: US (occurrence: US)
  Receive Date: 20151118
  Receipt Date: 20151118
  Transmission Date: 20160304
  Serious: Yes (Other)
  Sender: FDA-Public Use
  Company Number: US-NOVOPROD-434295

PATIENT
  Age: 24 Year
  Sex: Female
  Weight: 76.37 kg

DRUGS (5)
  1. NOVOLOG [Suspect]
     Active Substance: INSULIN ASPART
     Indication: TYPE 1 DIABETES MELLITUS
     Dosage: 120 U, QD
     Route: 058
     Dates: start: 2007
  2. LANTUS [Suspect]
     Active Substance: INSULIN GLARGINE
     Indication: TYPE 1 DIABETES MELLITUS
     Dosage: 20 U, QD
     Route: 058
     Dates: start: 2010
  3. NOVOLOG [Suspect]
     Active Substance: INSULIN ASPART
     Dosage: 4 U, BOLUS, LAST DOSE PRIOR TO THE EVENT
     Route: 058
     Dates: start: 20141221, end: 20141221
  4. LANTUS [Suspect]
     Active Substance: INSULIN GLARGINE
     Dosage: 16 U, LAST DOSE PRIOR TO THE EVENT
     Route: 058
     Dates: start: 20141221, end: 20141221
  5. LANTUS [Suspect]
     Active Substance: INSULIN GLARGINE
     Dosage: 14 U, QD
     Route: 058

REACTIONS (1)
  - Hypoglycaemic unconsciousness [Recovered/Resolved]

NARRATIVE: CASE EVENT DATE: 20141221
